FAERS Safety Report 13358321 (Version 1)
Quarter: 2017Q1

REPORT INFORMATION
  Report Type: Spontaneous
  Country: IT (occurrence: IT)
  Receive Date: 20170322
  Receipt Date: 20170322
  Transmission Date: 20170429
  Serious: Yes (Death, Other)
  Sender: FDA-Public Use
  Company Number: IT-CIPLA LTD.-2017IT04437

PATIENT

DRUGS (22)
  1. ZOLEDRONIC ACID [Suspect]
     Active Substance: ZOLEDRONIC ACID
     Dosage: UNK, AS 12TH LINE
     Route: 065
     Dates: start: 201310, end: 201404
  2. CARBOPLATIN. [Suspect]
     Active Substance: CARBOPLATIN
     Indication: BREAST CANCER METASTATIC
     Dosage: AUC-5, W3, AS 11 LINE
     Route: 065
     Dates: start: 201305, end: 201310
  3. MEGESTROL ACETATE. [Suspect]
     Active Substance: MEGESTROL ACETATE
     Dosage: 160 MG, DAILY, RESTARTED AS 7TH LINE
     Route: 065
     Dates: start: 200212, end: 200710
  4. LETROZOLE. [Suspect]
     Active Substance: LETROZOLE
     Indication: BREAST CANCER METASTATIC
     Dosage: 2.5 MG, DAILY, AS 5TH LINE
     Route: 065
     Dates: start: 200107, end: 200201
  5. VINORELBINE TARTRATE. [Suspect]
     Active Substance: VINORELBINE TARTRATE
     Indication: BREAST CANCER METASTATIC
     Dosage: 25 MG/M2, DAYS 1 TO 5, W3, AS 6TH LINE
     Route: 042
     Dates: start: 200202, end: 200212
  6. METHOTREXATE. [Suspect]
     Active Substance: METHOTREXATE
     Dosage: 2, 5 MG, TWICE A WEEK
     Route: 048
     Dates: start: 201102, end: 201303
  7. MEGESTROL ACETATE. [Suspect]
     Active Substance: MEGESTROL ACETATE
     Indication: BREAST CANCER METASTATIC
     Dosage: 160 MG, DAILY
     Route: 065
     Dates: start: 199704, end: 200001
  8. CAPECITABINE. [Suspect]
     Active Substance: CAPECITABINE
     Indication: BREAST CANCER METASTATIC
     Dosage: 1000 MG/M2, BID, FROM DAYS 1 TO 14, W3, AS 9TH LINE
     Route: 065
     Dates: start: 200901, end: 201102
  9. EPIRUBICIN [Suspect]
     Active Substance: EPIRUBICIN
     Indication: BREAST CANCER METASTATIC
     Dosage: 75 MG/M2, ON DAY 1, W3, AS 4TH LINE
     Route: 065
     Dates: start: 200102, end: 200106
  10. DOCETAXEL. [Suspect]
     Active Substance: DOCETAXEL
     Indication: BREAST CANCER METASTATIC
     Dosage: 80 MG/M2, ON DAY 1, W3, AS 4TH LINE
     Route: 065
     Dates: start: 200102, end: 200106
  11. CYCLOPHOSPHAMIDE. [Suspect]
     Active Substance: CYCLOPHOSPHAMIDE
     Indication: BREAST CANCER METASTATIC
     Dosage: 600 MG/M2, ON DAYS 1-8, EVERY 4 WEEKS, FOR 6 CYCLES AS ADJUVANT TREATMENT
     Route: 065
  12. CYCLOPHOSPHAMIDE. [Suspect]
     Active Substance: CYCLOPHOSPHAMIDE
     Dosage: 50 MG, PER DAY, AS 10TH LINE
     Route: 048
     Dates: start: 201102, end: 201303
  13. TAMOXIFEN [Suspect]
     Active Substance: TAMOXIFEN
     Dosage: 20 MG, DAILY, AS 8TH LINE
     Route: 065
     Dates: start: 200710, end: 200805
  14. ERIBULINE [Suspect]
     Active Substance: ERIBULIN
     Indication: BREAST CANCER METASTATIC
     Dosage: 1.2 MG/M2, ON DAY 1-8, W3, AS 12 LINE
     Route: 065
     Dates: start: 201310, end: 201404
  15. METHOTREXATE. [Suspect]
     Active Substance: METHOTREXATE
     Indication: BREAST CANCER METASTATIC
     Dosage: 40 MG/M2, ON DAYS 1-8, EVERY 4 WEEKS, FOR 6 CYCLES AS ADJUVANT TREATMENT
     Route: 065
  16. EVEROLIMUS [Suspect]
     Active Substance: EVEROLIMUS
     Indication: BREAST CANCER METASTATIC
     Dosage: 10 (5) MG, DAILY
     Route: 065
     Dates: start: 201405, end: 201409
  17. EXEMESTANE. [Suspect]
     Active Substance: EXEMESTANE
     Indication: BREAST CANCER METASTATIC
     Dosage: 25 MG, DAILY, AS 3RD LINE
     Route: 065
     Dates: start: 200101, end: 200101
  18. TAMOXIFEN [Suspect]
     Active Substance: TAMOXIFEN
     Indication: BREAST CANCER METASTATIC
     Dosage: 20 MG, DAILY, FOR 5 YEARS, AS ENDOCRINE THERAPY
     Route: 065
  19. FLUOROURACIL. [Suspect]
     Active Substance: FLUOROURACIL
     Indication: BREAST CANCER MALE
     Dosage: 600 MG/M2, ON DAYS 1-8, EVERY 4 WEEKS, FOR 6 CYCLES AS ADJUVANT TREATMENT
     Route: 065
  20. PACLITAXEL. [Suspect]
     Active Substance: PACLITAXEL
     Indication: BREAST CANCER METASTATIC
     Dosage: 80 MG/M2, WEEKLY (DAY 1-8-15, W4), AS FIRST LINE
     Route: 065
     Dates: start: 1996, end: 199703
  21. ZOLEDRONIC ACID [Suspect]
     Active Substance: ZOLEDRONIC ACID
     Indication: BREAST CANCER METASTATIC
     Dosage: UNK, AS 11TH LINE
     Route: 065
     Dates: start: 201305, end: 201310
  22. EXEMESTANE. [Suspect]
     Active Substance: EXEMESTANE
     Dosage: 25 MG, DAILY, AS 13TH LINE
     Route: 065
     Dates: start: 201405, end: 201409

REACTIONS (10)
  - Disease progression [Unknown]
  - Condition aggravated [Unknown]
  - Pulmonary embolism [Unknown]
  - Drug intolerance [Unknown]
  - Pneumonitis [Recovering/Resolving]
  - Cachexia [Unknown]
  - Treatment noncompliance [Unknown]
  - Death [Fatal]
  - Lymphangitis [Unknown]
  - Venous thrombosis [Unknown]

NARRATIVE: CASE EVENT DATE: 200001
